FAERS Safety Report 12313914 (Version 2)
Quarter: 2016Q2

REPORT INFORMATION
  Report Type: Spontaneous
  Country: US (occurrence: US)
  Receive Date: 20160428
  Receipt Date: 20160606
  Transmission Date: 20160815
  Serious: Yes (Death, Hospitalization, Other)
  Sender: FDA-Public Use
  Company Number: US-ELI_LILLY_AND_COMPANY-US201604008414

PATIENT
  Sex: Male
  Weight: 102.5 kg

DRUGS (18)
  1. LASIX [Concomitant]
     Active Substance: FUROSEMIDE
  2. SPIRONOLACTONE. [Concomitant]
     Active Substance: SPIRONOLACTONE
  3. COZAAR [Concomitant]
     Active Substance: LOSARTAN POTASSIUM
  4. HUMULIN R [Suspect]
     Active Substance: INSULIN HUMAN
     Indication: TYPE 2 DIABETES MELLITUS
  5. VENLAFAXIN [Concomitant]
     Active Substance: VENLAFAXINE HYDROCHLORIDE
  6. BENZONATATE. [Concomitant]
     Active Substance: BENZONATATE
  7. ADVIL (MEFENAMIC ACID) [Concomitant]
     Active Substance: MEFENAMIC ACID
     Dosage: UNK, PRN
  8. PLAVIX [Concomitant]
     Active Substance: CLOPIDOGREL BISULFATE
  9. XANAX [Concomitant]
     Active Substance: ALPRAZOLAM
  10. FLUTICASONE [Concomitant]
     Active Substance: FLUTICASONE\FLUTICASONE PROPIONATE
  11. HYDROCODONE [Concomitant]
     Active Substance: HYDROCODONE
     Dosage: UNK, PRN
  12. TOVIAZ [Concomitant]
     Active Substance: FESOTERODINE FUMARATE
  13. SIMVASTATIN. [Concomitant]
     Active Substance: SIMVASTATIN
  14. ALPHA LIPOIC ACID [Concomitant]
     Active Substance: .ALPHA.-LIPOIC ACID
  15. ASA [Concomitant]
     Active Substance: ASPIRIN
     Dosage: 325 MG, UNKNOWN
  16. PROAIR HFA [Concomitant]
     Active Substance: ALBUTEROL SULFATE
     Dosage: UNK, PRN
  17. HUMULIN R [Suspect]
     Active Substance: INSULIN HUMAN
     Indication: DIABETES MELLITUS
     Dosage: 80-100 U, OTHER, AC, BID, TID
     Route: 058
     Dates: start: 201509
  18. NITROGLYCERIN. [Concomitant]
     Active Substance: NITROGLYCERIN

REACTIONS (5)
  - Arterial insufficiency [Unknown]
  - Gangrene [Unknown]
  - Skin ulcer [Unknown]
  - Vascular graft complication [Fatal]
  - Wound complication [Unknown]

NARRATIVE: CASE EVENT DATE: 201510
